FAERS Safety Report 6149925-X (Version None)
Quarter: 2009Q2

REPORT INFORMATION
  Report Type: 
  Country: None (occurrence: None)
  Receive Date: 20090407
  Receipt Date: 20090407
  Transmission Date: 20091009
  Serious: Yes (Hospitalization)
  Sender: FDA-Public Use
  Company Number: None

PATIENT
  Sex: Female

DRUGS (16)
  1. LIDODERM [Suspect]
     Indication: ARTHRALGIA
     Dosage: 1 PATCH DAILY/REMOVE 12HRS TRANSDERMAL
     Route: 062
     Dates: start: 20090118, end: 20090119
  2. LIDODERM [Suspect]
     Indication: SURGERY
     Dosage: 1 PATCH DAILY/REMOVE 12HRS TRANSDERMAL
     Route: 062
     Dates: start: 20090118, end: 20090119
  3. ACETAMINOPHEN [Concomitant]
  4. ATENOLOL [Concomitant]
  5. BETA-CAROTENE [Concomitant]
  6. CALCIUM ACETATE [Concomitant]
  7. CINACALCET [Concomitant]
  8. DOXAZOSIN MESYLATE [Concomitant]
  9. EPOETIN [Concomitant]
  10. FERROUS SULFATE TAB [Concomitant]
  11. FUROSEMIDE [Concomitant]
  12. GLYBURIDE [Concomitant]
  13. HEPARIN [Concomitant]
  14. SIMVASTATIN [Concomitant]
  15. OXYCODONE HCL [Concomitant]
  16. VALSARTAN [Concomitant]

REACTIONS (4)
  - ARRHYTHMIA [None]
  - CONVULSION [None]
  - TORSADE DE POINTES [None]
  - VENTRICULAR TACHYCARDIA [None]
